FAERS Safety Report 14726412 (Version 1)
Quarter: 2018Q2

REPORT INFORMATION
  Report Type: Spontaneous
  Country: ZA (occurrence: ZA)
  Receive Date: 20180406
  Receipt Date: 20180406
  Transmission Date: 20180711
  Serious: Yes (Death, Other)
  Sender: FDA-Public Use
  Company Number: ZA-LUPIN PHARMACEUTICALS INC.-2018-02670

PATIENT
  Sex: Male

DRUGS (6)
  1. PLENISH-K [Suspect]
     Active Substance: POTASSIUM CHLORIDE
     Indication: MINERAL SUPPLEMENTATION
     Dosage: 600 MG, UNK
     Route: 048
     Dates: end: 20180225
  2. CARVETREND TABLETS [Suspect]
     Active Substance: CARVEDILOL
     Indication: CARDIAC DISORDER
     Dosage: 12.5 MG, UNK
     Route: 065
     Dates: end: 20180225
  3. PURICOS [Suspect]
     Active Substance: ALLOPURINOL
     Indication: GOUT
     Dosage: 300 MG, UNK
     Route: 065
     Dates: end: 20180225
  4. TAREG [Suspect]
     Active Substance: VALSARTAN
     Indication: HYPERTENSION
     Dosage: 80 MG, UNK
     Route: 065
     Dates: end: 20180225
  5. CIPLA WARFARIN [Suspect]
     Active Substance: WARFARIN
     Indication: ANTICOAGULANT THERAPY
     Dosage: 5 MG, UNK
     Route: 065
     Dates: end: 20180225
  6. NOVOMIX 30 [Suspect]
     Active Substance: INSULIN ASPART
     Indication: DIABETES MELLITUS
     Dosage: UNK
     Route: 065
     Dates: end: 20180225

REACTIONS (1)
  - Myocardial infarction [Fatal]
